FAERS Safety Report 8711499 (Version 5)
Quarter: 2013Q1

REPORT INFORMATION
  Report Type: Report from Study
  Country: JP (occurrence: JP)
  Receive Date: 20120807
  Receipt Date: 20130129
  Transmission Date: 20140127
  Serious: Yes (Death, Hospitalization)
  Sender: FDA-Public Use
  Company Number: JP-PFIZER INC-2012076316

PATIENT
  Age: 51 Year
  Sex: Female
  Weight: 64 kg

DRUGS (4)
  1. TEMSIROLIMUS [Suspect]
     Dosage: 25 MG, UNK
     Route: 042
     Dates: start: 20120224
  2. TEMSIROLIMUS [Suspect]
     Dosage: 15 MG, WEEKLY
     Route: 042
  3. LASIX [Concomitant]
     Dosage: 20 MG, 2X/DAY
     Route: 048
  4. GOREI-SAN [Concomitant]
     Dosage: 2.5 G, 3X/DAY
     Route: 048

REACTIONS (5)
  - Disease progression [Fatal]
  - Renal cell carcinoma [Fatal]
  - Oedema [Not Recovered/Not Resolved]
  - Weight increased [Not Recovered/Not Resolved]
  - Dyspnoea [Not Recovered/Not Resolved]
